FAERS Safety Report 16911683 (Version 1)
Quarter: 2019Q4

REPORT INFORMATION
  Report Type: Spontaneous
  Country: CA (occurrence: CA)
  Receive Date: 20191013
  Receipt Date: 20191013
  Transmission Date: 20200122
  Serious: Yes (Life-Threatening, Hospitalization, Other)
  Sender: FDA-Public Use
  Company Number: CA-AUROBINDO-AUR-APL-2019-065786

PATIENT
  Age: 80 Year
  Sex: Male
  Weight: 48 kg

DRUGS (3)
  1. CLOPIDOGREL [Suspect]
     Active Substance: CLOPIDOGREL BISULFATE
     Indication: THROMBOSIS PROPHYLAXIS
     Dosage: 75.0 MILLIGRAM, ONCE A DAY
     Route: 048
  2. ASA [Suspect]
     Active Substance: ASPIRIN
     Indication: THROMBOSIS PROPHYLAXIS
     Dosage: 81.0 MILLIGRAM, ONCE A DAY
     Route: 048
  3. ELIQUIS [Suspect]
     Active Substance: APIXABAN
     Indication: ATRIAL FIBRILLATION
     Dosage: 5.0 MILLIGRAM, TWO TIMES A DAY
     Route: 048

REACTIONS (6)
  - Melaena [Recovered/Resolved]
  - Incorrect product administration duration [Recovered/Resolved]
  - Gastric ulcer [Recovered/Resolved]
  - Occult blood positive [Recovered/Resolved]
  - Transfusion [Recovered/Resolved]
  - Haemoglobin decreased [Recovered/Resolved]
